FAERS Safety Report 19141904 (Version 1)
Quarter: 2021Q2

REPORT INFORMATION
  Report Type: Report from Study
  Country: CN (occurrence: CN)
  Receive Date: 20210415
  Receipt Date: 20210415
  Transmission Date: 20210717
  Serious: Yes (Other)
  Sender: FDA-Public Use
  Company Number: CN-B.I. PHARMACEUTICALS,INC./RIDGEFIELD-2021-BI-095797

PATIENT
  Age: 71 Year
  Sex: Male

DRUGS (2)
  1. CLOPIDOGREL [CLOPIDOGREL BESYLATE] [Concomitant]
     Active Substance: CLOPIDOGREL BESILATE
     Indication: ANTIPLATELET THERAPY
     Route: 048
  2. PRADAXA [Suspect]
     Active Substance: DABIGATRAN ETEXILATE MESYLATE
     Indication: ATRIAL FIBRILLATION
     Route: 048

REACTIONS (1)
  - Cardiac tamponade [Recovered/Resolved]
